FAERS Safety Report 9452672 (Version 3)
Quarter: 2016Q1

REPORT INFORMATION
  Report Type: Spontaneous
  Country: US (occurrence: US)
  Receive Date: 20130812
  Receipt Date: 20160314
  Transmission Date: 20160526
  Serious: Yes (Hospitalization)
  Sender: FDA-Public Use
  Company Number: US-BAYER-2013-094145

PATIENT
  Age: 51 Year
  Sex: Female
  Weight: 130 kg

DRUGS (2)
  1. MIRENA [Suspect]
     Active Substance: LEVONORGESTREL
     Indication: UTERINE ENLARGEMENT
     Dosage: 20 MCG/24HR, CONT
     Route: 015
     Dates: start: 20130723, end: 20130802
  2. MIRENA [Suspect]
     Active Substance: LEVONORGESTREL
     Indication: MENSTRUAL CYCLE MANAGEMENT

REACTIONS (7)
  - Musculoskeletal stiffness [None]
  - Diarrhoea [None]
  - Urinary incontinence [None]
  - Seizure [None]
  - Eye movement disorder [None]
  - Product use issue [None]
  - Screaming [None]

NARRATIVE: CASE EVENT DATE: 20130728
